FAERS Safety Report 6808289-6 (Version None)
Quarter: 2010Q2

REPORT INFORMATION
  Report Type: 
  Country: None (occurrence: None)
  Receive Date: 20100629
  Receipt Date: 20090616
  Transmission Date: 20101027
  Serious: No
  Sender: FDA-Public Use
  Company Number: US-PFIZER INC-2009161736

PATIENT
  Sex: Female

DRUGS (8)
  1. TIKOSYN [Suspect]
     Indication: ARRHYTHMIA
     Dosage: UNK
     Route: 048
     Dates: start: 20080401
  2. METOPROLOL TARTRATE [Concomitant]
     Dosage: UNK
  3. ZESTRIL [Concomitant]
     Dosage: UNK
  4. LASIX [Concomitant]
     Dosage: UNK
  5. SPIRONOLACTONE [Concomitant]
     Dosage: UNK
  6. PLAVIX [Concomitant]
     Dosage: UNK
  7. CLONAZEPAM [Concomitant]
     Dosage: UNK
  8. WARFARIN [Concomitant]
     Dosage: UNK

REACTIONS (2)
  - CHEST PAIN [None]
  - HEART RATE IRREGULAR [None]
